FAERS Safety Report 9703888 (Version 2)
Quarter: 2016Q1

REPORT INFORMATION
  Report Type: Report from Study
  Country: US (occurrence: US)
  Receive Date: 20131122
  Receipt Date: 20160205
  Transmission Date: 20160526
  Serious: Yes (Other)
  Sender: FDA-Public Use
  Company Number: US-ROCHE-1306914

PATIENT
  Sex: Female

DRUGS (12)
  1. AZATHIOPRIN [Concomitant]
     Active Substance: AZATHIOPRINE
  2. XOLAIR [Suspect]
     Active Substance: OMALIZUMAB
     Indication: RHINITIS ALLERGIC
  3. REQUIP [Concomitant]
     Active Substance: ROPINIROLE HYDROCHLORIDE
     Route: 065
  4. ZOLOFT [Concomitant]
     Active Substance: SERTRALINE HYDROCHLORIDE
     Route: 048
  5. NEURONTIN [Concomitant]
     Active Substance: GABAPENTIN
     Route: 048
  6. TRAMADOL. [Concomitant]
     Active Substance: TRAMADOL
     Route: 065
  7. SINGULAIR [Concomitant]
     Active Substance: MONTELUKAST SODIUM
     Route: 065
  8. OMEPRAZOLE. [Concomitant]
     Active Substance: OMEPRAZOLE
     Route: 048
  9. ALBUTEROL SULFATE. [Concomitant]
     Active Substance: ALBUTEROL SULFATE
     Dosage: 90MCG/ACTUATION
     Route: 055
  10. ADVAIR HFA [Concomitant]
     Active Substance: FLUTICASONE PROPIONATE\SALMETEROL XINAFOATE
     Dosage: FOR 30 DAYS
     Route: 055
     Dates: start: 20130719
  11. XOLAIR [Suspect]
     Active Substance: OMALIZUMAB
     Indication: ASTHMA
     Route: 058
  12. XOLAIR [Suspect]
     Active Substance: OMALIZUMAB
     Indication: IMMUNODEFICIENCY COMMON VARIABLE

REACTIONS (15)
  - Rash [Unknown]
  - Pruritus [Unknown]
  - Gastric disorder [Unknown]
  - Asthma [Unknown]
  - Abdominal pain [Unknown]
  - Rhinitis [Unknown]
  - Gastric ulcer haemorrhage [Unknown]
  - Cardiac disorder [Unknown]
  - Fatigue [Unknown]
  - Eczema [Unknown]
  - Dyspnoea [Unknown]
  - Wheezing [Unknown]
  - Upper respiratory tract infection [Unknown]
  - Cough [Unknown]
  - Decreased activity [Unknown]
